FAERS Safety Report 6184369-6 (Version None)
Quarter: 2009Q2

REPORT INFORMATION
  Report Type: 
  Country: None (occurrence: None)
  Receive Date: 20090508
  Receipt Date: 20090503
  Transmission Date: 20091009
  Serious: Yes (Other)
  Sender: FDA-Public Use
  Company Number: A0782827A

PATIENT
  Sex: Female

DRUGS (3)
  1. ADVAIR HFA [Suspect]
     Indication: ASTHMA
     Route: 055
  2. SEREVENT [Suspect]
     Indication: ASTHMA
     Route: 055
  3. SINGULAIR [Concomitant]

REACTIONS (4)
  - APHONIA [None]
  - ASTHMA [None]
  - DRUG INEFFECTIVE [None]
  - VOCAL CORD DISORDER [None]
